FAERS Safety Report 16333753 (Version 3)
Quarter: 2019Q3

REPORT INFORMATION
  Report Type: Spontaneous
  Country: BR (occurrence: BR)
  Receive Date: 20190520
  Receipt Date: 20190703
  Transmission Date: 20191004
  Serious: Yes (Hospitalization)
  Sender: FDA-Public Use
  Company Number: BR-BIOMARINAP-BR-2019-123728

PATIENT
  Age: 12 Year
  Sex: Male
  Weight: 35 kg

DRUGS (1)
  1. ALDURAZYME [Suspect]
     Active Substance: LARONIDASE
     Indication: MUCOPOLYSACCHARIDOSIS
     Dosage: 16 DOSAGE FORM, QOW
     Route: 041
     Dates: start: 20080501

REACTIONS (6)
  - Bone disorder [Recovering/Resolving]
  - Weight decreased [Not Recovered/Not Resolved]
  - Procedural pain [Recovering/Resolving]
  - Foot deformity [Recovering/Resolving]
  - Pain [Not Recovered/Not Resolved]
  - Joint dislocation [Recovering/Resolving]

NARRATIVE: CASE EVENT DATE: 201905
